FAERS Safety Report 11046344 (Version 3)
Quarter: 2017Q1

REPORT INFORMATION
  Report Type: Spontaneous
  Country: US (occurrence: US)
  Receive Date: 20150419
  Receipt Date: 20170105
  Transmission Date: 20170428
  Serious: Yes (Other)
  Sender: FDA-Public Use
  Company Number: US-009507513-1504USA015653

PATIENT
  Sex: Male
  Weight: 105.67 kg

DRUGS (5)
  1. FINASTERIDE. [Suspect]
     Active Substance: FINASTERIDE
     Indication: HAIR GROWTH ABNORMAL
     Dosage: UNK UNK, QD
     Route: 048
     Dates: start: 20130228, end: 20131109
  2. PROPECIA [Suspect]
     Active Substance: FINASTERIDE
     Indication: HAIR GROWTH ABNORMAL
     Dosage: UNK UNK, QD
     Route: 048
     Dates: start: 20110812, end: 20130124
  3. POTASSIUM CHLORIDE. [Concomitant]
     Active Substance: POTASSIUM CHLORIDE
     Dosage: UNK
     Dates: start: 20070831
  4. INDAPAMIDE. [Concomitant]
     Active Substance: INDAPAMIDE
     Dosage: UNK
     Dates: start: 20050810
  5. NISOLDIPINE. [Concomitant]
     Active Substance: NISOLDIPINE
     Indication: BLOOD PRESSURE MEASUREMENT
     Dosage: UNK
     Dates: start: 20070831

REACTIONS (16)
  - Anxiety [Not Recovered/Not Resolved]
  - Emotional distress [Not Recovered/Not Resolved]
  - Benign prostatic hyperplasia [Not Recovered/Not Resolved]
  - Genital disorder male [Unknown]
  - Peyronie^s disease [Not Recovered/Not Resolved]
  - Bursitis [Unknown]
  - Intervertebral disc degeneration [Unknown]
  - Erectile dysfunction [Not Recovered/Not Resolved]
  - Obesity [Not Recovered/Not Resolved]
  - Antinuclear antibody positive [Unknown]
  - Loss of libido [Not Recovered/Not Resolved]
  - Depression [Not Recovered/Not Resolved]
  - Urinary tract obstruction [Not Recovered/Not Resolved]
  - Sexual dysfunction [Not Recovered/Not Resolved]
  - Hypogonadism male [Not Recovered/Not Resolved]
  - Lower urinary tract symptoms [Not Recovered/Not Resolved]

NARRATIVE: CASE EVENT DATE: 201205
